FAERS Safety Report 26012718 (Version 2)
Quarter: 2025Q4

REPORT INFORMATION
  Report Type: Spontaneous
  Country: AU (occurrence: AU)
  Receive Date: 20251107
  Receipt Date: 20251117
  Transmission Date: 20260119
  Serious: Yes (Other)
  Sender: Harrow Health
  Company Number: NVSC2025AU166600

PATIENT
  Age: 73 Year
  Sex: Female

DRUGS (2)
  1. MAXIDEX [Suspect]
     Active Substance: DEXAMETHASONE
     Indication: Product used for unknown indication
     Route: 047
  2. PHENYLEPHRINE HYDROCHLORIDE\PREDNISOLONE ACETATE [Suspect]
     Active Substance: PHENYLEPHRINE HYDROCHLORIDE\PREDNISOLONE ACETATE
     Indication: Product used for unknown indication
     Route: 047

REACTIONS (3)
  - Glaucoma [Unknown]
  - Blindness [Unknown]
  - Eye pain [Recovered/Resolved]
